FAERS Safety Report 7590106-0 (Version None)
Quarter: 2011Q3

REPORT INFORMATION
  Report Type: 
  Country: None (occurrence: None)
  Receive Date: 20110705
  Receipt Date: 20110627
  Transmission Date: 20111222
  Serious: Yes (Hospitalization)
  Sender: FDA-Public Use
  Company Number: B0728699A

PATIENT
  Sex: Male
  Weight: 2.9 kg

DRUGS (2)
  1. LAMICTAL [Suspect]
     Indication: EPILEPSY
     Dosage: 200MG PER DAY
     Route: 064
  2. LAMICTAL [Suspect]
     Dosage: 200MG PER DAY
     Route: 063
     Dates: start: 20110408, end: 20110525

REACTIONS (5)
  - POOR WEIGHT GAIN NEONATAL [None]
  - MATERNAL EXPOSURE DURING PREGNANCY [None]
  - SOMNOLENCE [None]
  - JAUNDICE NEONATAL [None]
  - EXPOSURE DURING BREAST FEEDING [None]
